FAERS Safety Report 6833597-2 (Version None)
Quarter: 2010Q3

REPORT INFORMATION
  Report Type: 
  Country: None (occurrence: None)
  Receive Date: 20100712
  Receipt Date: 20070329
  Transmission Date: 20110219
  Serious: No
  Sender: FDA-Public Use
  Company Number: US-PFIZER INC-2007026590

PATIENT
  Sex: Female
  Weight: 77.11 kg

DRUGS (5)
  1. CHANTIX [Suspect]
     Indication: SMOKING CESSATION THERAPY
     Dates: start: 20070201
  2. ALL OTHER THERAPEUTIC PRODUCTS [Concomitant]
     Indication: BLOOD CHOLESTEROL ABNORMAL
  3. ANXIOLYTICS [Concomitant]
     Indication: ANXIETY
  4. OSCAL [Concomitant]
     Indication: OSTEOPOROSIS
  5. IBANDRONATE SODIUM [Concomitant]
     Indication: OSTEOPOROSIS

REACTIONS (3)
  - ANGER [None]
  - ANXIETY [None]
  - SCREAMING [None]
